FAERS Safety Report 25186453 (Version 1)
Quarter: 2025Q2

REPORT INFORMATION
  Report Type: Report from Study
  Country: CL (occurrence: CL)
  Receive Date: 20250411
  Receipt Date: 20250411
  Transmission Date: 20250716
  Serious: Yes (Hospitalization, Other)
  Sender: ABBVIE
  Company Number: CL-ABBVIE-6213986

PATIENT
  Age: 70 Year
  Sex: Female

DRUGS (1)
  1. RINVOQ [Suspect]
     Active Substance: UPADACITINIB
     Indication: Dermatitis atopic
     Dosage: 15MG X 30 TABLETS
     Route: 048
     Dates: start: 20240801

REACTIONS (6)
  - Colitis [Recovering/Resolving]
  - Diverticulitis intestinal perforated [Recovering/Resolving]
  - Gastritis [Recovering/Resolving]
  - Pyrexia [Recovered/Resolved]
  - Fungal skin infection [Not Recovered/Not Resolved]
  - Stress [Unknown]

NARRATIVE: CASE EVENT DATE: 20250101
